FAERS Safety Report 10207021 (Version 2)
Quarter: 2014Q2

REPORT INFORMATION
  Report Type: Spontaneous
  Country: US (occurrence: US)
  Receive Date: 20140530
  Receipt Date: 20140530
  Transmission Date: 20141212
  Serious: No
  Sender: FDA-Public Use
  Company Number: US-MYLANLABS-2014S1001023

PATIENT
  Age: 66 Year
  Sex: Female

DRUGS (8)
  1. GLIPIZIDE TABLETS, USP [Suspect]
     Indication: INSULIN-REQUIRING TYPE 2 DIABETES MELLITUS
     Route: 048
     Dates: start: 2013
  2. METFORMIN HYDROCHLORIDE [Suspect]
     Indication: INSULIN-REQUIRING TYPE 2 DIABETES MELLITUS
     Route: 048
     Dates: start: 2013, end: 2013
  3. PAROXETINE [Concomitant]
  4. AMLODIPINE [Concomitant]
  5. XANAX [Concomitant]
  6. BUSPIRONE [Concomitant]
  7. PROPRANOLOL [Concomitant]
  8. ASPIRIN [Concomitant]

REACTIONS (2)
  - Diarrhoea [Not Recovered/Not Resolved]
  - Abdominal pain [Recovered/Resolved]
